FAERS Safety Report 8460433-3 (Version None)
Quarter: 2012Q2

REPORT INFORMATION
  Report Type: 
  Country: None (occurrence: None)
  Receive Date: 20120622
  Receipt Date: 20120620
  Transmission Date: 20120825
  Serious: Yes (Hospitalization, Other)
  Sender: FDA-Public Use
  Company Number: CHPA2012US012796

PATIENT
  Age: 73 Year
  Sex: Male

DRUGS (4)
  1. VOLTAREN [Suspect]
     Indication: NEUROPATHY PERIPHERAL
     Dosage: SMALL AMOUNT, UNK
     Route: 061
     Dates: start: 20120101
  2. DRUG THERAPY NOS [Concomitant]
  3. CAPSICUM [Concomitant]
     Indication: NEUROPATHY PERIPHERAL
  4. IRON [Concomitant]
     Indication: ANAEMIA
     Dosage: UNK

REACTIONS (6)
  - VASCULAR OCCLUSION [None]
  - WRONG TECHNIQUE IN DRUG USAGE PROCESS [None]
  - OFF LABEL USE [None]
  - DRUG DISPENSING ERROR [None]
  - THERAPEUTIC RESPONSE UNEXPECTED [None]
  - RESPIRATORY DISORDER [None]
